FAERS Safety Report 9218228 (Version 4)
Quarter: 2014Q3

REPORT INFORMATION
  Report Type: Spontaneous
  Country: US (occurrence: US)
  Receive Date: 20130408
  Receipt Date: 20140827
  Transmission Date: 20150326
  Serious: Yes (Hospitalization, Other)
  Sender: FDA-Public Use
  Company Number: US-009507513-2011SP008651

PATIENT
  Sex: Female
  Weight: 55.34 kg

DRUGS (3)
  1. AMERGE [Concomitant]
     Active Substance: NARATRIPTAN HYDROCHLORIDE
     Indication: MIGRAINE
     Dosage: 2 TIMES WEEKLY IN 40 DAYS PRIOR TO PULMONARY EMBOLISM
     Dates: start: 2001
  2. ZONISAMIDE. [Concomitant]
     Active Substance: ZONISAMIDE
     Indication: PROPHYLAXIS
     Dosage: UNK UNK, BID
     Dates: start: 2007, end: 2008
  3. NUVARING [Suspect]
     Active Substance: ETHINYL ESTRADIOL\ETONOGESTREL
     Indication: CONTRACEPTION
     Dosage: UNK
     Dates: start: 20070330, end: 200803

REACTIONS (8)
  - Mitral valve incompetence [Unknown]
  - Cellulitis [Unknown]
  - Pulmonary embolism [Unknown]
  - Tricuspid valve incompetence [Unknown]
  - Raynaud^s phenomenon [Unknown]
  - Pulmonary infarction [Unknown]
  - Arteriovenous malformation [Unknown]
  - Migraine [Not Recovered/Not Resolved]

NARRATIVE: CASE EVENT DATE: 2007
